FAERS Safety Report 7436021-4 (Version None)
Quarter: 2011Q2

REPORT INFORMATION
  Report Type: 
  Country: None (occurrence: None)
  Receive Date: 20110418
  Receipt Date: 20110401
  Transmission Date: 20111010
  Serious: Yes (Death)
  Sender: FDA-Public Use
  Company Number: 2011001603

PATIENT
  Age: 69 Year
  Sex: Male

DRUGS (1)
  1. ERLOTINIB HYDROCHLORIDE [Suspect]
     Indication: NON-SMALL CELL LUNG CANCER
     Dosage: (150 MG,QD),INTRAVENOUS
     Route: 042
     Dates: start: 20090610, end: 20100729

REACTIONS (1)
  - PNEUMONIA ASPIRATION [None]
